FAERS Safety Report 21998892 (Version 1)
Quarter: 2023Q1

REPORT INFORMATION
  Report Type: Spontaneous
  Country: US (occurrence: None)
  Receive Date: 20230214
  Receipt Date: 20230214
  Transmission Date: 20230417
  Serious: No
  Sender: FDA-Public Use
  Company Number: None

PATIENT
  Age: 45 Year
  Sex: Female

DRUGS (1)
  1. SKYRIZI [Suspect]
     Active Substance: RISANKIZUMAB-RZAA
     Indication: Psoriasis
     Dosage: 150MG EVERY 12 WEEKS SUB-Q?
     Route: 058
     Dates: start: 202109

REACTIONS (4)
  - Device defective [None]
  - Needle issue [None]
  - Product leakage [None]
  - Product dose omission issue [None]

NARRATIVE: CASE EVENT DATE: 20230213
